FAERS Safety Report 6093715-3 (Version None)
Quarter: 2009Q1

REPORT INFORMATION
  Report Type: 
  Country: None (occurrence: None)
  Receive Date: 20090223
  Receipt Date: 20090223
  Transmission Date: 20090719
  Serious: Yes (Life-Threatening, Hospitalization, Congenital Anomaly)
  Sender: FDA-Public Use
  Company Number: None

PATIENT
  Sex: Male
  Weight: 2.7216 kg

DRUGS (1)
  1. DELALUTIN [Suspect]
     Indication: LUTEAL PHASE DEFICIENCY
     Dosage: 250 MG  ONCE A WEEK IM
     Route: 030
     Dates: start: 19850520, end: 19850810

REACTIONS (6)
  - ALCOHOL INTERACTION [None]
  - CHROMOSOMAL DELETION [None]
  - EBSTEIN'S ANOMALY [None]
  - HEART DISEASE CONGENITAL [None]
  - MATERNAL DRUGS AFFECTING FOETUS [None]
  - MICROCEPHALY [None]
